FAERS Safety Report 23275589 (Version 1)
Quarter: 2023Q4

REPORT INFORMATION
  Report Type: Spontaneous
  Country: IT (occurrence: IT)
  Receive Date: 20231208
  Receipt Date: 20231208
  Transmission Date: 20240110
  Serious: Yes (Other)
  Sender: FDA-Public Use
  Company Number: None

PATIENT
  Age: 58 Year
  Sex: Female

DRUGS (2)
  1. CISPLATIN [Suspect]
     Active Substance: CISPLATIN
     Indication: Lung neoplasm malignant
     Dosage: 1600 MG
     Route: 042
     Dates: start: 20231004, end: 20231004
  2. ETOPOSIDE [Suspect]
     Active Substance: ETOPOSIDE
     Indication: Lung neoplasm malignant
     Dosage: 180 MG
     Route: 042
     Dates: start: 20231004, end: 20231004

REACTIONS (1)
  - Neutropenia [Unknown]

NARRATIVE: CASE EVENT DATE: 20231025
